FAERS Safety Report 9093649 (Version 1)
Quarter: 2013Q1

REPORT INFORMATION
  Report Type: Report from Study
  Country: US (occurrence: US)
  Receive Date: 20130131
  Receipt Date: 20130131
  Transmission Date: 20140127
  Serious: No
  Sender: FDA-Public Use
  Company Number: US-ABBOTT-12P-163-1010307-00

PATIENT
  Age: 19 Year
  Sex: Female

DRUGS (3)
  1. HUMIRA [Suspect]
     Indication: ANKYLOSING SPONDYLITIS
     Dates: start: 20121115
  2. CELEXA [Concomitant]
     Indication: DEPRESSION
     Dosage: 20 MG DAILIY
     Route: 048
  3. NORTREL [Concomitant]
     Indication: CONTRACEPTION
     Route: 048

REACTIONS (1)
  - Nausea [Not Recovered/Not Resolved]
